FAERS Safety Report 25090443 (Version 1)
Quarter: 2025Q1

REPORT INFORMATION
  Report Type: Spontaneous
  Country: US (occurrence: None)
  Receive Date: 20250318
  Receipt Date: 20250318
  Transmission Date: 20250409
  Serious: No
  Sender: INCYTE
  Company Number: US-EVENT-002010

PATIENT
  Age: 63 Year

DRUGS (1)
  1. OPZELURA [Suspect]
     Active Substance: RUXOLITINIB PHOSPHATE
     Indication: Dermatitis atopic
     Dosage: 1.5 PERCENT, BID (APPLY A THIN LAYER TO AFFECTED AREA TWICE DAILY FOR UP TO 24 WEEKS AS DIRECTED)

REACTIONS (1)
  - Drug ineffective [Unknown]
